FAERS Safety Report 19602124 (Version 4)
Quarter: 2021Q3

REPORT INFORMATION
  Report Type: Spontaneous
  Country: CA (occurrence: CA)
  Receive Date: 20210722
  Receipt Date: 20210902
  Transmission Date: 20211014
  Serious: Yes (Other)
  Sender: FDA-Public Use
  Company Number: CA-CELLTRION INC.-2021CA003348

PATIENT

DRUGS (4)
  1. INFLECTRA [Suspect]
     Active Substance: INFLIXIMAB-DYYB
     Dosage: 300 MG EVERY 4 WEEKS (5 MG/KG EVERY 4 WEEKS)
     Route: 042
     Dates: start: 20210424
  2. INFLECTRA [Suspect]
     Active Substance: INFLIXIMAB-DYYB
     Dosage: 300 MG EVERY 4 WEEKS (5 MG/KG EVERY 4 WEEKS)
     Route: 042
     Dates: start: 20210522
  3. INFLECTRA [Suspect]
     Active Substance: INFLIXIMAB-DYYB
     Indication: CROHN^S DISEASE
     Dosage: 300 MG EVERY 4 WEEKS (5 MG/KG EVERY 4 WEEKS)
     Route: 042
     Dates: start: 20210308
  4. INFLECTRA [Suspect]
     Active Substance: INFLIXIMAB-DYYB
     Dosage: 300 MG EVERY 4 WEEKS (5 MG/KG EVERY 4 WEEKS)
     Route: 042
     Dates: start: 20210619, end: 2021

REACTIONS (7)
  - Rash pruritic [Unknown]
  - Rash [Unknown]
  - Drug hypersensitivity [Unknown]
  - Off label use [Unknown]
  - Blister [Unknown]
  - Flushing [Unknown]
  - Palmoplantar pustulosis [Unknown]

NARRATIVE: CASE EVENT DATE: 20210522
